FAERS Safety Report 22073980 (Version 1)
Quarter: 2023Q1

REPORT INFORMATION
  Report Type: Spontaneous
  Country: CN (occurrence: None)
  Receive Date: 20230308
  Receipt Date: 20230308
  Transmission Date: 20230418
  Serious: Yes (Hospitalization)
  Sender: FDA-Public Use
  Company Number: 2023A051576

PATIENT
  Age: 14245 Day
  Sex: Male
  Weight: 96 kg

DRUGS (1)
  1. DAPAGLIFLOZIN [Suspect]
     Active Substance: DAPAGLIFLOZIN
     Indication: Blood glucose decreased
     Route: 048
     Dates: start: 20230212, end: 20230219

REACTIONS (2)
  - Diabetic ketosis [Recovering/Resolving]
  - Chronic gastritis [Unknown]
